FAERS Safety Report 14487099 (Version 1)
Quarter: 2018Q1

REPORT INFORMATION
  Report Type: Spontaneous
  Country: US (occurrence: US)
  Receive Date: 20180204
  Receipt Date: 20180204
  Transmission Date: 20180509
  Serious: Yes (Other)
  Sender: FDA-Public Use
  Company Number: None

PATIENT
  Age: 64 Year
  Sex: Female
  Weight: 66.6 kg

DRUGS (13)
  1. RANTITDINE [Concomitant]
  2. TZANDINE [Concomitant]
  3. KLONIPIN [Concomitant]
     Active Substance: CLONAZEPAM
  4. B6 [Concomitant]
     Active Substance: PYRIDOXINE HYDROCHLORIDE
  5. PERCOCET [Concomitant]
     Active Substance: ACETAMINOPHEN\OXYCODONE HYDROCHLORIDE
  6. LYRICA [Concomitant]
     Active Substance: PREGABALIN
  7. MAGNESIUM [Concomitant]
     Active Substance: MAGNESIUM
  8. MIRALAX [Suspect]
     Active Substance: POLYETHYLENE GLYCOL 3350
     Indication: CONSTIPATION
     Route: 048
  9. OXYCONTON [Concomitant]
  10. SINEQUAN [Concomitant]
     Active Substance: DOXEPIN HYDROCHLORIDE
  11. ZINC. [Concomitant]
     Active Substance: ZINC
  12. DEXILANT [Concomitant]
     Active Substance: DEXLANSOPRAZOLE
  13. VIAMINC [Concomitant]

REACTIONS (11)
  - Toxicity to various agents [None]
  - Hypersomnia [None]
  - Memory impairment [None]
  - Emotional disorder [None]
  - Gastroenteritis viral [None]
  - Dizziness [None]
  - Nausea [None]
  - Headache [None]
  - Gallbladder disorder [None]
  - Gastritis [None]
  - Malaise [None]

NARRATIVE: CASE EVENT DATE: 20170821
